FAERS Safety Report 10873672 (Version 2)
Quarter: 2015Q1

REPORT INFORMATION
  Report Type: Spontaneous
  Country: US (occurrence: US)
  Receive Date: 20150227
  Receipt Date: 20150227
  Transmission Date: 20150721
  Serious: Yes (Hospitalization)
  Sender: FDA-Public Use
  Company Number: US-JNJFOC-20150212705

PATIENT
  Age: 81 Year
  Sex: Male

DRUGS (2)
  1. XARELTO [Suspect]
     Active Substance: RIVAROXABAN
     Indication: CEREBROVASCULAR ACCIDENT PROPHYLAXIS
     Route: 048
  2. XARELTO [Suspect]
     Active Substance: RIVAROXABAN
     Indication: ATRIAL FIBRILLATION
     Route: 048

REACTIONS (6)
  - Catheter site discharge [Unknown]
  - Fall [Recovered/Resolved]
  - Head injury [Recovered/Resolved]
  - International normalised ratio increased [Unknown]
  - Creatinine renal clearance decreased [Recovering/Resolving]
  - Wound secretion [Unknown]

NARRATIVE: CASE EVENT DATE: 201502
